FAERS Safety Report 14685586 (Version 2)
Quarter: 2018Q2

REPORT INFORMATION
  Report Type: Spontaneous
  Country: PL (occurrence: PL)
  Receive Date: 20180327
  Receipt Date: 20180403
  Transmission Date: 20180711
  Serious: Yes (Life-Threatening)
  Sender: FDA-Public Use
  Company Number: PL-ASTELLAS-2018US015337

PATIENT
  Sex: Female

DRUGS (2)
  1. ERLOTINIB [Suspect]
     Active Substance: ERLOTINIB
     Indication: NON-SMALL CELL LUNG CANCER
     Dosage: 150 (UNITS NOT REPORTED), UNKNOWN FREQ. (ADMINISTERED IN CYCLES)
     Route: 048
  2. ERLOTINIB [Suspect]
     Active Substance: ERLOTINIB
     Dosage: DOSE REDUCED, MONOTHERAPY, UNKNOWN FREQUENCY
     Route: 048

REACTIONS (2)
  - Neutropenia [Unknown]
  - Rash [Unknown]
